FAERS Safety Report 7810265-1 (Version None)
Quarter: 2011Q4

REPORT INFORMATION
  Report Type: 
  Country: None (occurrence: None)
  Receive Date: 20111012
  Receipt Date: 20111005
  Transmission Date: 20120403
  Serious: Yes (Hospitalization, Other)
  Sender: FDA-Public Use
  Company Number: US-SANOFI-AVENTIS-2011SA066012

PATIENT
  Sex: Male
  Weight: 90 kg

DRUGS (15)
  1. PLAVIX [Suspect]
     Route: 048
     Dates: start: 20060101, end: 20110301
  2. PLAVIX [Suspect]
     Dosage: QOD OR QD FOR 2 DAYS THEN SKIPPING A DAY
     Route: 048
     Dates: start: 20110501
  3. SODIUM BICARBONATE [Concomitant]
     Dates: start: 20110101
  4. LEVEMIR [Concomitant]
     Dosage: DOSE:20 UNIT(S)
  5. PLAVIX [Suspect]
     Indication: STENT PLACEMENT
     Route: 048
     Dates: start: 20060101, end: 20110301
  6. PLAVIX [Suspect]
     Dosage: QOD OR QD FOR 2 DAYS THEN SKIPPING A DAY
     Route: 048
     Dates: start: 20110501
  7. VYTORIN [Concomitant]
     Indication: BLOOD CHOLESTEROL ABNORMAL
     Dosage: 10/20
  8. ASPIRIN [Concomitant]
  9. NOVOLOG [Concomitant]
  10. LASIX [Concomitant]
     Route: 048
  11. MULTI-VITAMINS [Concomitant]
  12. CARVEDILOL [Concomitant]
  13. FISH OIL [Concomitant]
  14. LASIX [Concomitant]
     Route: 048
  15. LISINOPRIL [Concomitant]
     Indication: HYPERTENSION

REACTIONS (10)
  - PYREXIA [None]
  - ABNORMAL DREAMS [None]
  - DRUG DOSE OMISSION [None]
  - RENAL FAILURE [None]
  - COMA [None]
  - DYSPNOEA [None]
  - BLOOD PRESSURE INCREASED [None]
  - HYPERHIDROSIS [None]
  - CARDIAC FAILURE [None]
  - FLUID RETENTION [None]
